FAERS Safety Report 9807552 (Version 3)
Quarter: 2014Q2

REPORT INFORMATION
  Report Type: Report from Study
  Country: US (occurrence: US)
  Receive Date: 20140110
  Receipt Date: 20140409
  Transmission Date: 20141212
  Serious: Yes (Death, Life-Threatening, Hospitalization, Other)
  Sender: FDA-Public Use
  Company Number: US-ROCHE-1329951

PATIENT
  Age: 56 Year
  Sex: Female
  Weight: 83.54 kg

DRUGS (12)
  1. XELODA [Suspect]
     Indication: COLON CANCER METASTATIC
     Route: 042
     Dates: start: 20131216, end: 20131216
  2. AVASTIN [Suspect]
     Indication: COLON CANCER METASTATIC
     Route: 042
     Dates: start: 201311, end: 201312
  3. AVASTIN [Suspect]
     Route: 042
     Dates: start: 20131216, end: 20131216
  4. OXALIPLATIN [Suspect]
     Indication: COLON CANCER METASTATIC
     Route: 042
     Dates: start: 20131216, end: 20131216
  5. ALPRAZOLAM [Concomitant]
     Indication: ANXIETY
     Route: 048
  6. CARVEDILOL [Concomitant]
     Route: 048
  7. LISINOPRIL [Concomitant]
     Indication: BLOOD PRESSURE INCREASED
     Route: 048
  8. FUROSEMIDE [Concomitant]
     Indication: OEDEMA
     Route: 048
  9. SPIRONOLACTONE [Concomitant]
     Route: 048
  10. BENADRYL (UNITED STATES) [Concomitant]
     Route: 042
     Dates: start: 20131216, end: 20131216
  11. ZOFRAN [Concomitant]
     Route: 048
     Dates: start: 20131216, end: 20131216
  12. DECADRON [Concomitant]
     Dosage: ONCE
     Route: 048
     Dates: start: 20131216, end: 20131216

REACTIONS (12)
  - Death [Fatal]
  - Cardiac disorder [Not Recovered/Not Resolved]
  - Dyspnoea [Recovered/Resolved]
  - Throat tightness [Recovered/Resolved]
  - Dyspnoea [Recovered/Resolved]
  - Pulse abnormal [Recovered/Resolved]
  - Anaphylactic shock [Recovered/Resolved]
  - Adverse drug reaction [Unknown]
  - Sedation [Not Recovered/Not Resolved]
  - Dizziness [Not Recovered/Not Resolved]
  - Nausea [Recovered/Resolved]
  - Blood count abnormal [Unknown]
